FAERS Safety Report 8770343 (Version 1)
Quarter: 2012Q4

REPORT INFORMATION
  Report Type: 
  Country: FR (occurrence: FR)
  Receive Date: 20120906
  Receipt Date: 20120906
  Transmission Date: 20130627
  Serious: Yes (Hospitalization)
  Sender: FDA-Public Use
  Company Number: FR-BAXTER-2012BAX007944

PATIENT
  Age: 49 Year
  Sex: Male
  Weight: 80 kg

DRUGS (5)
  1. CYCLOPHOSPHAMIDE [Suspect]
     Indication: CHRONIC LYMPHOID LEUKEMIA
     Route: 048
     Dates: start: 20110627, end: 20111125
  2. MABTHERA [Suspect]
     Indication: CHRONIC LYMPHOID LEUKEMIA
     Route: 042
     Dates: start: 20110627, end: 20111123
  3. FLUDARA [Suspect]
     Indication: CHRONIC LYMPHOID LEUKEMIA
     Route: 048
     Dates: start: 20110627, end: 20111125
  4. METHYLPREDNISOLONE [Concomitant]
     Indication: DRUG USE FOR UNKNOWN INDICATION
     Route: 065
  5. POLARAMINE [Concomitant]
     Indication: DRUG USE FOR UNKNOWN INDICATION
     Route: 065

REACTIONS (5)
  - Mouth ulceration [Recovering/Resolving]
  - Lymphopenia [Not Recovered/Not Resolved]
  - Pain [None]
  - Insomnia [None]
  - Weight decreased [None]
